FAERS Safety Report 7598023-7 (Version None)
Quarter: 2011Q3

REPORT INFORMATION
  Report Type: 
  Country: None (occurrence: None)
  Receive Date: 20110708
  Receipt Date: 20110628
  Transmission Date: 20111222
  Serious: Yes (Hospitalization)
  Sender: FDA-Public Use
  Company Number: TR-ABBOTT-11P-161-0835059-00

PATIENT
  Age: 48 Year
  Sex: Male

DRUGS (2)
  1. DESFLURANE [Suspect]
     Indication: ANAESTHESIA
  2. SEVOFLURANE [Suspect]
     Indication: PRODUCT USED FOR UNKNOWN INDICATION

REACTIONS (1)
  - COLITIS ULCERATIVE [None]
